FAERS Safety Report 7519103-8 (Version None)
Quarter: 2011Q2

REPORT INFORMATION
  Report Type: 
  Country: None (occurrence: None)
  Receive Date: 20110602
  Receipt Date: 20110518
  Transmission Date: 20111010
  Serious: Yes (Hospitalization)
  Sender: FDA-Public Use
  Company Number: PHHY2011US35364

PATIENT
  Sex: Female
  Weight: 130 kg

DRUGS (16)
  1. ULTRAM [Concomitant]
     Dosage: UNK
  2. CARDIZEM [Concomitant]
     Indication: HYPERTENSION
     Dosage: UNK
     Route: 048
  3. CREON [Concomitant]
     Indication: PANCREATIC INSUFFICIENCY
     Dosage: UNK
     Route: 048
  4. RECLAST [Suspect]
     Indication: OSTEOPOROSIS POSTMENOPAUSAL
     Dosage: 5 MG, UNK
     Route: 042
     Dates: start: 20110401, end: 20110401
  5. PREVACID [Concomitant]
  6. LEVOXYL [Concomitant]
     Dosage: UNK
     Route: 048
  7. POTASSIUM CHLORIDE [Concomitant]
  8. PRAVASTATIN [Concomitant]
  9. ACETAMINOPHEN [Concomitant]
  10. COUMADIN [Concomitant]
  11. FUROSEMIDE [Concomitant]
  12. LIDODERM [Concomitant]
  13. FOLIC ACID [Concomitant]
  14. INSULIN [Concomitant]
     Indication: DIABETES MELLITUS
     Dosage: UNK
  15. COZAAR [Concomitant]
     Indication: HYPERTENSION
     Dosage: UNK
     Route: 048
  16. FLOVENT [Concomitant]

REACTIONS (10)
  - VOMITING [None]
  - FAILURE TO THRIVE [None]
  - NAUSEA [None]
  - DECREASED APPETITE [None]
  - BLOOD CREATINE INCREASED [None]
  - MALAISE [None]
  - BLOOD CALCIUM INCREASED [None]
  - RENAL FAILURE [None]
  - BLOOD UREA INCREASED [None]
  - PAIN [None]
